FAERS Safety Report 17871146 (Version 2)
Quarter: 2020Q2

REPORT INFORMATION
  Report Type: Spontaneous
  Country: ES (occurrence: ES)
  Receive Date: 20200608
  Receipt Date: 20200624
  Transmission Date: 20200714
  Serious: Yes (Death, Other)
  Sender: FDA-Public Use
  Company Number: ES-009507513-2006ESP001003

PATIENT
  Age: 88 Year
  Sex: Male

DRUGS (2)
  1. ZINPLAVA [Suspect]
     Active Substance: BEZLOTOXUMAB
     Indication: CLOSTRIDIUM DIFFICILE INFECTION
     Dosage: UNK
     Dates: start: 20190117
  2. VANCOMYCIN [Suspect]
     Active Substance: VANCOMYCIN
     Dosage: UNK
     Dates: start: 20190117

REACTIONS (2)
  - Colon neoplasm [Fatal]
  - Bowel movement irregularity [Unknown]

NARRATIVE: CASE EVENT DATE: 2019
